FAERS Safety Report 9646381 (Version 1)
Quarter: 2013Q4

REPORT INFORMATION
  Report Type: Spontaneous
  Country: FR (occurrence: None)
  Receive Date: 20131024
  Receipt Date: 20131024
  Transmission Date: 20140711
  Serious: Yes (Hospitalization)
  Sender: FDA-Public Use
  Company Number: 1922686

PATIENT
  Age: 62 Year
  Sex: Female

DRUGS (6)
  1. CARBOPLATIN [Suspect]
     Indication: OVARIAN CANCER
     Route: 041
     Dates: start: 20110706, end: 20110706
  2. PACLITAXEL EBEWE [Concomitant]
  3. POLRAMINE [Concomitant]
  4. METHYLPREDNISOLONE MERCK [Concomitant]
  5. ZOPHREN /00955302/ [Concomitant]
  6. AZANTAC [Concomitant]

REACTIONS (3)
  - Hot flush [None]
  - Vomiting [None]
  - Blood pressure increased [None]
